FAERS Safety Report 12549433 (Version 1)
Quarter: 2016Q3

REPORT INFORMATION
  Report Type: Spontaneous
  Country: US (occurrence: US)
  Receive Date: 20160712
  Receipt Date: 20160712
  Transmission Date: 20161109
  Serious: Yes (Hospitalization)
  Sender: FDA-Public Use
  Company Number: US-IMPAX LABORATORIES, INC-2016-IPXL-00724

PATIENT
  Age: 35 Year
  Sex: Female

DRUGS (1)
  1. BUPROPION HYDROCHLORIDE EXTENDED-RELEASE [Suspect]
     Active Substance: BUPROPION HYDROCHLORIDE
     Indication: PRODUCT USED FOR UNKNOWN INDICATION
     Dosage: 90-100 TABLETS (13.5-15G)
     Route: 065

REACTIONS (8)
  - Cardiac arrest [Unknown]
  - Ventricular tachyarrhythmia [Unknown]
  - Hypotension [Unknown]
  - Poisoning deliberate [Unknown]
  - Overdose [Unknown]
  - Status epilepticus [Unknown]
  - Mental status changes [Unknown]
  - Generalised tonic-clonic seizure [Unknown]
